FAERS Safety Report 7733970-4 (Version None)
Quarter: 2011Q3

REPORT INFORMATION
  Report Type: 
  Country: None (occurrence: None)
  Receive Date: 20110907
  Receipt Date: 20110824
  Transmission Date: 20111222
  Serious: Yes (Disabling)
  Sender: FDA-Public Use
  Company Number: JP-ALLERGAN-1111737US

PATIENT
  Age: 69 Year
  Sex: Female

DRUGS (3)
  1. LUMIGAN [Suspect]
     Indication: OPEN ANGLE GLAUCOMA
     Dosage: 1 GTT, QD
     Route: 047
     Dates: start: 20100112
  2. LUMIGAN [Suspect]
     Dosage: 1 GTT, QD
     Route: 047
     Dates: start: 20100112, end: 20101022
  3. CARTEOLOL HYDROCHLORIDE [Concomitant]
     Indication: PRODUCT USED FOR UNKNOWN INDICATION
     Dosage: UNK
     Dates: start: 20050910, end: 20100928

REACTIONS (4)
  - BLEPHARAL PIGMENTATION [None]
  - INTRAOCULAR PRESSURE INCREASED [None]
  - GROWTH OF EYELASHES [None]
  - CONJUNCTIVAL HYPERAEMIA [None]
